FAERS Safety Report 4320943-7 (Version None)
Quarter: 2004Q1

REPORT INFORMATION
  Report Type: 
  Country: None (occurrence: None)
  Receive Date: 20040318
  Receipt Date: 20040106
  Transmission Date: 20041129
  Serious: Yes (Life-Threatening, Hospitalization, Disabling)
  Sender: FDA-Public Use
  Company Number: A03200400022

PATIENT
  Age: 50 Year
  Sex: Female
  Weight: 79.3795 kg

DRUGS (9)
  1. ARALEN [Suspect]
     Indication: RHEUMATOID ARTHRITIS
     Dosage: 500 MG QD - ORAL
     Route: 048
     Dates: end: 20011201
  2. METHOTREXATE [Concomitant]
  3. LEVOTHYROXINE SODIUM [Concomitant]
  4. FOLIC ACID [Concomitant]
  5. CONJUGATED ESTROGENS/MEDROXYPROGESTERONE [Concomitant]
  6. PANTOPRAZOLE SODIUM [Concomitant]
  7. FUROSEMIDE [Concomitant]
  8. POTASSIUM CHLORIDE [Concomitant]
  9. LISINOPRIL [Concomitant]

REACTIONS (29)
  - ASTHENIA [None]
  - ATRIAL THROMBOSIS [None]
  - BACK PAIN [None]
  - CARDIAC FAILURE CONGESTIVE [None]
  - CARDIO-RESPIRATORY ARREST [None]
  - CATARACT [None]
  - CLOSTRIDIAL INFECTION [None]
  - CORONARY ARTERY ATHEROSCLEROSIS [None]
  - DEPRESSION [None]
  - DILATATION VENTRICULAR [None]
  - DYSPEPSIA [None]
  - HAEMODYNAMIC INSTABILITY [None]
  - HEART TRANSPLANT [None]
  - HYPOTHYROIDISM [None]
  - LENTICULAR OPACITIES [None]
  - LEUKOPENIA [None]
  - LOBAR PNEUMONIA [None]
  - NERVE INJURY [None]
  - POST PROCEDURAL DIARRHOEA [None]
  - POST PROCEDURAL NAUSEA [None]
  - POST PROCEDURAL VOMITING [None]
  - RENAL FAILURE [None]
  - RESTRICTIVE CARDIOMYOPATHY [None]
  - RETINOPATHY [None]
  - TRANSIENT ISCHAEMIC ATTACK [None]
  - VENTRICULAR HYPERTROPHY [None]
  - VISUAL ACUITY REDUCED [None]
  - VOCAL CORD PARESIS [None]
  - WOUND INFECTION [None]
